FAERS Safety Report 8140234-6 (Version None)
Quarter: 2012Q1

REPORT INFORMATION
  Report Type: 
  Country: None (occurrence: None)
  Receive Date: 20120216
  Receipt Date: 20090409
  Transmission Date: 20120608
  Serious: Yes (Hospitalization)
  Sender: FDA-Public Use
  Company Number: 2008BI033092

PATIENT
  Age: 30 Year
  Sex: Female

DRUGS (11)
  1. TYSABRI [Suspect]
     Route: 042
     Dates: start: 20080503, end: 20081103
  2. TYSABRI [Suspect]
     Route: 042
     Dates: start: 20090127, end: 20090224
  3. COUMADIN [Concomitant]
  4. TYSABRI [Suspect]
     Route: 042
     Dates: start: 20090127, end: 20090224
  5. LEXAPRO [Concomitant]
  6. TYSABRI [Suspect]
     Indication: MULTIPLE SCLEROSIS
     Route: 042
     Dates: start: 20080503, end: 20081103
  7. FLOMAX [Concomitant]
  8. COUMADIN [Concomitant]
  9. BACLOFEN [Concomitant]
     Indication: MUSCLE SPASTICITY
  10. PEPCID [Concomitant]
  11. VITAMIN D [Concomitant]

REACTIONS (2)
  - URINARY TRACT INFECTION [None]
  - MULTIPLE SCLEROSIS RELAPSE [None]
